FAERS Safety Report 23158531 (Version 1)
Quarter: 2023Q4

REPORT INFORMATION
  Report Type: Spontaneous
  Country: ES (occurrence: ES)
  Receive Date: 20231108
  Receipt Date: 20231108
  Transmission Date: 20240110
  Serious: Yes (Other)
  Sender: FDA-Public Use
  Company Number: ES-STRIDES ARCOLAB LIMITED-2023SP016589

PATIENT
  Age: 53 Year
  Sex: Female

DRUGS (7)
  1. PREDNISOLONE [Suspect]
     Active Substance: PREDNISOLONE
     Indication: Chronic actinic dermatitis
     Dosage: UNK
     Route: 048
  2. CYCLOSPORINE [Suspect]
     Active Substance: CYCLOSPORINE
     Indication: Chronic actinic dermatitis
     Dosage: 5 MILLIGRAM/KILOGRAM PER DAY
     Route: 065
  3. AZATHIOPRINE [Suspect]
     Active Substance: AZATHIOPRINE
     Indication: Chronic actinic dermatitis
     Dosage: 1.5 MILLIGRAM/KILOGRAM
     Route: 065
  4. HYDROXYCHLOROQUINE [Suspect]
     Active Substance: HYDROXYCHLOROQUINE
     Indication: Chronic actinic dermatitis
     Dosage: 5 MILLIGRAM/KILOGRAM PER DAY
     Route: 065
  5. DUPILUMAB [Suspect]
     Active Substance: DUPILUMAB
     Indication: Chronic actinic dermatitis
     Dosage: 600 MILLIGRAM AT DAY 1
     Route: 065
  6. DUPILUMAB [Suspect]
     Active Substance: DUPILUMAB
     Dosage: 300 MILLIGRAM, EVERY TWO WEEKS
     Route: 065
  7. BARICITINIB [Suspect]
     Active Substance: BARICITINIB
     Indication: Chronic actinic dermatitis
     Dosage: 4 MILLIGRAM PER DAY
     Route: 048

REACTIONS (5)
  - Lymphopenia [Recovered/Resolved]
  - Therapy non-responder [Unknown]
  - Oral herpes [Recovered/Resolved]
  - Infection reactivation [Recovered/Resolved]
  - Off label use [Unknown]
